FAERS Safety Report 9672396 (Version 1)
Quarter: 2013Q4

REPORT INFORMATION
  Report Type: Spontaneous
  Country: FR (occurrence: None)
  Receive Date: 20131105
  Receipt Date: 20131105
  Transmission Date: 20140711
  Serious: Yes (Hospitalization, Other)
  Sender: FDA-Public Use
  Company Number: 2013000291

PATIENT
  Age: 84 Year
  Sex: Female

DRUGS (21)
  1. ACEON [Suspect]
     Indication: PRODUCT USED FOR UNKNOWN INDICATION
     Route: 048
     Dates: start: 20130812, end: 20131007
  2. METOJECT (METHOTREXATE SODIUM) [Concomitant]
  3. FOLIC ACID (FOLIC ACID) [Concomitant]
  4. ORENCIA (ABATACEPT) [Concomitant]
  5. CORTANCYL (PREDNISONE) [Concomitant]
  6. COUMADINE (WARFARIN SODIUM) [Concomitant]
  7. INEXIUM (ESOMEPRAZOLE MAGNESIUM) (ESOMEPRAZOLE MAGNESIUM) [Concomitant]
  8. CACIT D3 (CALCIUM CARBONATE, COLECALCIFEROL) [Concomitant]
  9. NEBIVOLOL (NEBIVOLOL) [Concomitant]
  10. EPINITRIL (GLYCERYL TRINITRATE) [Concomitant]
  11. LASILIX (FUROSEMIDE) [Concomitant]
  12. FORLAX (MACROGOL) [Concomitant]
  13. VISMED (HYALURONATE SODIUM) [Concomitant]
  14. RETINOL (RETINOL) [Concomitant]
  15. TRIFLUCAN (FLUCONAZOLE) [Concomitant]
  16. FLAMMAZINE (SULFADIAZINE SILVER) [Concomitant]
  17. LOMEXIN (FENTICONAZOLE NITRATE) [Concomitant]
  18. FUNGIZONE (AMPHOTERICIN B) [Concomitant]
  19. ZELITREX (VALACICLOVIR HYDROCHLORIDE) (VALACICLOVIR HYDROCHLORIDE) [Concomitant]
  20. PARACETAMOL (PARACETAMOL) [Concomitant]
  21. ACUPAN (NEFOPAM HYDROCHLORIDE) [Concomitant]

REACTIONS (8)
  - Vulvar erosion [None]
  - Condition aggravated [None]
  - Renal failure acute [None]
  - Pain [None]
  - Dysuria [None]
  - Dehydration [None]
  - Hyperkalaemia [None]
  - Hyponatraemia [None]
